FAERS Safety Report 13774535 (Version 1)
Quarter: 2017Q3

REPORT INFORMATION
  Report Type: Spontaneous
  Country: NL (occurrence: NL)
  Receive Date: 20170721
  Receipt Date: 20170721
  Transmission Date: 20171127
  Serious: Yes (Other)
  Sender: FDA-Public Use
  Company Number: NL-BAYER-2017-134201

PATIENT
  Age: 53 Year
  Sex: Male

DRUGS (1)
  1. SORAFENIB (RAF KINASE INHIBITOR) [Suspect]
     Active Substance: SORAFENIB
     Indication: HEPATOCELLULAR CARCINOMA
     Dosage: 200 MG, BID

REACTIONS (14)
  - Hepatic cancer [None]
  - Ascites [None]
  - Weight decreased [None]
  - Fatigue [None]
  - Decreased appetite [None]
  - Cachexia [None]
  - Nausea [None]
  - Oedematous pancreatitis [None]
  - Pancreatitis acute [Recovering/Resolving]
  - Jaundice [None]
  - Abdominal pain upper [None]
  - Abdominal pain [None]
  - Rash [Recovering/Resolving]
  - Ocular icterus [None]
